FAERS Safety Report 18970902 (Version 1)
Quarter: 2021Q1

REPORT INFORMATION
  Report Type: Other
  Country: ES (occurrence: ES)
  Receive Date: 20210305
  Receipt Date: 20210305
  Transmission Date: 20210420
  Serious: Yes (Hospitalization)
  Sender: FDA-Public Use
  Company Number: ES-CELLTRION INC.-2021ES002662

PATIENT

DRUGS (4)
  1. PACLITAXEL. [Suspect]
     Active Substance: PACLITAXEL
     Indication: BREAST CANCER
     Dosage: 60 MG/M2 (TOTAL)
     Route: 042
     Dates: start: 20200828, end: 20200828
  2. PERTUZUMAB. [Suspect]
     Active Substance: PERTUZUMAB
     Indication: BREAST CANCER
     Dosage: 420 MG (TOTAL)
     Route: 042
     Dates: start: 20200828, end: 20200828
  3. CARBOPLATINO [Suspect]
     Active Substance: CARBOPLATIN
     Indication: BREAST CANCER
     Dosage: 650 MG (TOTAL)
     Route: 042
     Dates: start: 20200828, end: 20200828
  4. TRASTUZUMAB (UNKNOWN) [Suspect]
     Active Substance: TRASTUZUMAB
     Indication: BREAST CANCER
     Dosage: 6 MG/KG (TOTAL)
     Route: 042
     Dates: start: 20200828, end: 20200828

REACTIONS (3)
  - Infusion related reaction [Recovered/Resolved]
  - Acute pulmonary oedema [Recovered/Resolved]
  - Hypertensive crisis [Recovered/Resolved]

NARRATIVE: CASE EVENT DATE: 20200828
